FAERS Safety Report 16483971 (Version 2)
Quarter: 2019Q3

REPORT INFORMATION
  Report Type: Spontaneous
  Country: US (occurrence: US)
  Receive Date: 20190627
  Receipt Date: 20190708
  Transmission Date: 20191004
  Serious: Yes (Other)
  Sender: FDA-Public Use
  Company Number: US-AKCEA THERAPEUTICS-2019IS001566

PATIENT

DRUGS (14)
  1. TEGSEDI [Suspect]
     Active Substance: INOTERSEN SODIUM
     Dosage: 284 MG/ 1.5 ML, QW
     Route: 058
     Dates: start: 201805
  2. VOLTAREN [Concomitant]
     Active Substance: DICLOFENAC SODIUM
     Dosage: 100 MG, UNK
     Route: 048
  3. TEGSEDI [Suspect]
     Active Substance: INOTERSEN SODIUM
     Indication: HEREDITARY NEUROPATHIC AMYLOIDOSIS
     Dosage: 284 MG/ 1.5 ML, QW
     Route: 058
     Dates: start: 20180420, end: 20190523
  4. KLONOPIN [Concomitant]
     Active Substance: CLONAZEPAM
     Dosage: 0.5 MG, UNK
     Route: 048
  5. FLONASE ALLERGY RELIEF [Concomitant]
     Active Substance: FLUTICASONE PROPIONATE
     Dosage: 50 MCG
     Route: 055
  6. CLARITIN [Concomitant]
     Active Substance: LORATADINE
     Dosage: 10 MG, UNK
     Route: 048
  7. NEURONTIN [Concomitant]
     Active Substance: GABAPENTIN
     Dosage: 100 MG, UNK
     Route: 048
  8. TOPAMAX [Concomitant]
     Active Substance: TOPIRAMATE
     Dosage: 100 MG, UNK
     Route: 048
  9. METHOTREXATE. [Concomitant]
     Active Substance: METHOTREXATE
     Indication: SERONEGATIVE ARTHRITIS
     Dosage: 10 MG, QW
     Route: 048
     Dates: start: 20080520, end: 20140621
  10. ULTRAM [Concomitant]
     Active Substance: TRAMADOL HYDROCHLORIDE
     Dosage: 50 MG, UNK
     Route: 048
  11. PRILOSEC [Concomitant]
     Active Substance: OMEPRAZOLE MAGNESIUM
     Dosage: 20 MG, UNK
     Route: 048
  12. TENORMIN [Concomitant]
     Active Substance: ATENOLOL
     Dosage: 50 MG, UNK
     Route: 048
  13. METHOTREXATE. [Concomitant]
     Active Substance: METHOTREXATE
     Dosage: 7.5 MG, QW
     Route: 048
     Dates: start: 20080520, end: 20140621
  14. GABAPENTIN. [Concomitant]
     Active Substance: GABAPENTIN
     Indication: EPILEPSY
     Dosage: UNK

REACTIONS (15)
  - Thrombocytopenia [Unknown]
  - Alanine aminotransferase increased [Unknown]
  - Red blood cell sedimentation rate increased [Unknown]
  - Hepatic failure [Unknown]
  - Platelet count decreased [Not Recovered/Not Resolved]
  - Blood glucose increased [Unknown]
  - Anion gap decreased [Unknown]
  - Blood albumin decreased [Unknown]
  - Liver function test increased [Not Recovered/Not Resolved]
  - Aspartate aminotransferase increased [Unknown]
  - Red cell distribution width increased [Unknown]
  - Blood alkaline phosphatase increased [Unknown]
  - Smooth muscle antibody positive [Unknown]
  - Blood chloride increased [Unknown]
  - Carbon dioxide abnormal [Unknown]

NARRATIVE: CASE EVENT DATE: 20190218
